FAERS Safety Report 5201306-9 (Version None)
Quarter: 2007Q1

REPORT INFORMATION
  Report Type: 
  Country: None (occurrence: None)
  Receive Date: 20070108
  Receipt Date: 20061227
  Transmission Date: 20070707
  Serious: Yes (Hospitalization)
  Sender: FDA-Public Use
  Company Number: US-ELI_LILLY_AND_COMPANY-US200610000946

PATIENT
  Age: 81 Year
  Sex: Female

DRUGS (1)
  1. FORTEO [Suspect]
     Dates: start: 20060729, end: 20060909

REACTIONS (7)
  - ABASIA [None]
  - COUGH [None]
  - DISORIENTATION [None]
  - DIZZINESS [None]
  - RETCHING [None]
  - VERTIGO [None]
  - VISUAL DISTURBANCE [None]
